FAERS Safety Report 23446053 (Version 1)
Quarter: 2024Q1

REPORT INFORMATION
  Report Type: Spontaneous
  Country: CZ (occurrence: CZ)
  Receive Date: 20240126
  Receipt Date: 20240126
  Transmission Date: 20240410
  Serious: Yes (Life-Threatening, Hospitalization, Disabling, Other)
  Sender: FDA-Public Use
  Company Number: None

PATIENT
  Age: 64 Year
  Sex: Female
  Weight: 75 kg

DRUGS (14)
  1. KEYTRUDA [Suspect]
     Active Substance: PEMBROLIZUMAB
     Indication: Triple negative breast cancer
     Dosage: 200 MILLIGRAM, Q3W
     Route: 042
     Dates: start: 20230505, end: 20230908
  2. KEYTRUDA [Suspect]
     Active Substance: PEMBROLIZUMAB
     Dosage: 200 MILLIGRAM, Q3W
     Route: 042
     Dates: start: 20231128, end: 20231218
  3. HELICID [OMEPRAZOLE SODIUM] [Concomitant]
     Dosage: UNK
  4. BIOFENAC [ACECLOFENAC] [Concomitant]
     Dosage: AS NEEDED
  5. CYCLOPHOSPHAMIDE [Concomitant]
     Active Substance: CYCLOPHOSPHAMIDE
     Indication: Neoadjuvant therapy
     Dosage: UNK, Q3W
     Dates: start: 20230505, end: 20230616
  6. CYCLOPHOSPHAMIDE [Concomitant]
     Active Substance: CYCLOPHOSPHAMIDE
     Indication: Triple negative breast cancer
  7. EUTHYROX [Concomitant]
     Active Substance: LEVOTHYROXINE SODIUM
     Indication: Thyroid disorder
     Dosage: 100 MICROGRAM, 6 X PER WEEK
     Route: 048
  8. PACLITAXEL [Concomitant]
     Active Substance: PACLITAXEL
     Indication: Adjuvant therapy
     Dosage: UNK, Q3W
     Dates: start: 20230707, end: 20230908
  9. PACLITAXEL [Concomitant]
     Active Substance: PACLITAXEL
     Indication: Triple negative breast cancer
  10. DOXORUBICIN [Concomitant]
     Active Substance: DOXORUBICIN
     Indication: Neoadjuvant therapy
     Dosage: UNK, Q3W
     Dates: start: 20230505, end: 20230616
  11. DOXORUBICIN [Concomitant]
     Active Substance: DOXORUBICIN
     Indication: Triple negative breast cancer
  12. ENOXAPARIN SODIUM [Concomitant]
     Active Substance: ENOXAPARIN SODIUM
     Dosage: 0.4 MILLILITER, QD
     Route: 058
  13. CARBOPLATIN [Concomitant]
     Active Substance: CARBOPLATIN
     Indication: Adjuvant therapy
     Dosage: UNK, Q3W
     Dates: start: 20230707, end: 20230908
  14. CARBOPLATIN [Concomitant]
     Active Substance: CARBOPLATIN
     Indication: Triple negative breast cancer

REACTIONS (2)
  - Immune-mediated arthritis [Recovered/Resolved]
  - Immune-mediated hypophysitis [Recovering/Resolving]

NARRATIVE: CASE EVENT DATE: 20231001
